FAERS Safety Report 16279381 (Version 4)
Quarter: 2021Q1

REPORT INFORMATION
  Report Type: Other
  Country: CA (occurrence: CA)
  Receive Date: 20190507
  Receipt Date: 20210211
  Transmission Date: 20210419
  Serious: Yes (Other)
  Sender: FDA-Public Use
  Company Number: CA-ROCHE-2313000

PATIENT
  Sex: Male

DRUGS (12)
  1. XOLAIR [Suspect]
     Active Substance: OMALIZUMAB
     Indication: ASTHMA
     Route: 058
     Dates: start: 20100625
  2. XOLAIR [Suspect]
     Active Substance: OMALIZUMAB
     Dosage: UNK
     Route: 058
     Dates: start: 20150130
  3. XOLAIR [Suspect]
     Active Substance: OMALIZUMAB
     Dosage: UNK
     Route: 058
     Dates: start: 20140612
  4. XOLAIR [Suspect]
     Active Substance: OMALIZUMAB
     Route: 058
  5. PULMICORT TURBUHALER [Concomitant]
     Active Substance: BUDESONIDE
     Indication: PRODUCT USED FOR UNKNOWN INDICATION
     Dosage: UNK
     Route: 065
  6. XOLAIR [Suspect]
     Active Substance: OMALIZUMAB
     Dosage: UNK
     Route: 058
     Dates: start: 20131011
  7. XOLAIR [Suspect]
     Active Substance: OMALIZUMAB
     Dosage: UNK
     Route: 058
     Dates: start: 20140515
  8. XOLAIR [Suspect]
     Active Substance: OMALIZUMAB
     Dosage: UNK
     Route: 058
     Dates: start: 20160929
  9. XOLAIR [Suspect]
     Active Substance: OMALIZUMAB
     Dosage: UNK
     Route: 058
     Dates: start: 20170210
  10. SYMBICORT [Concomitant]
     Active Substance: BUDESONIDE\FORMOTEROL FUMARATE DIHYDRATE
     Indication: PRODUCT USED FOR UNKNOWN INDICATION
     Dosage: UNK
     Route: 065
  11. VENTOLIN [Concomitant]
     Active Substance: ALBUTEROL SULFATE
     Indication: PRODUCT USED FOR UNKNOWN INDICATION
     Dosage: UNK
     Route: 065
  12. XOLAIR [Suspect]
     Active Substance: OMALIZUMAB
     Dosage: UNK
     Route: 058
     Dates: start: 20131106

REACTIONS (17)
  - Forced expiratory volume decreased [Not Recovered/Not Resolved]
  - Nasal congestion [Unknown]
  - Wheezing [Unknown]
  - Squamous cell carcinoma [Unknown]
  - Rales [Unknown]
  - Iron deficiency [Unknown]
  - Body temperature decreased [Unknown]
  - Weight increased [Unknown]
  - Middle insomnia [Unknown]
  - Respiratory disorder [Not Recovered/Not Resolved]
  - Internal haemorrhage [Unknown]
  - Dysphonia [Unknown]
  - Lower respiratory tract infection [Recovering/Resolving]
  - Asthma [Unknown]
  - Productive cough [Unknown]
  - Nasopharyngitis [Unknown]
  - Mechanical ventilation complication [Unknown]

NARRATIVE: CASE EVENT DATE: 20131010
